FAERS Safety Report 6618141-7 (Version None)
Quarter: 2010Q1

REPORT INFORMATION
  Report Type: 
  Country: None (occurrence: None)
  Receive Date: 20100308
  Receipt Date: 20100224
  Transmission Date: 20100710
  Serious: Yes (Other)
  Sender: FDA-Public Use
  Company Number: US-ROCHE-687872

PATIENT
  Age: 61 Year
  Sex: Female

DRUGS (4)
  1. TRASTUZUMAB [Suspect]
     Indication: BREAST CANCER
     Dosage: FREQUENCY EVERY CYCLE, 4TH CYCLE
     Route: 042
  2. DOCETAXEL [Suspect]
     Indication: BREAST CANCER
     Dosage: FREQUENCY :EVERY CYCLE,4TH CYCLE
     Route: 041
  3. CYTOXAN [Suspect]
     Indication: BREAST CANCER
     Dosage: FREQUENCY REPORTED AS EVERY CYCLE.4TH CYCLE
     Route: 042
  4. RADIOPHARMACEUTICALS [Concomitant]

REACTIONS (5)
  - CATARACT [None]
  - DEPRESSION [None]
  - HALLUCINATION [None]
  - SUICIDAL IDEATION [None]
  - VISUAL IMPAIRMENT [None]
